FAERS Safety Report 9258424 (Version 1)
Quarter: 2013Q1

REPORT INFORMATION
  Report Type: Spontaneous
  Country: US (occurrence: None)
  Receive Date: 20121212
  Receipt Date: 20121212
  Transmission Date: 20140127
  Serious: No
  Sender: FDA-Public Use
  Company Number: 1208USA009304

PATIENT
  Age: 61 Year
  Sex: Female
  Weight: 83 kg

DRUGS (10)
  1. VICTRELIS [Suspect]
     Dosage: 4 CAPSULES
     Route: 048
  2. REBETOL [Suspect]
     Route: 048
  3. PEGASYS (PEGINERFERON ALFA-2A) [Concomitant]
  4. METHADONE HYDROCHLORIDE (METHADONE HYDROCHLORIDE) [Concomitant]
  5. PROVENTIL (ALBUTEROL SULFATE) [Concomitant]
  6. CLONAZEPAM (CLONAZEPAM) [Concomitant]
  7. CLONIDINE (CLONIDINE) [Concomitant]
  8. CLARITIN (LORATADINE) [Concomitant]
  9. HYDROCORT (HYDROCORTISONE) [Concomitant]
  10. TYLENOL (8 HOUR EXTENDED RELEASE) [Concomitant]

REACTIONS (3)
  - Visual impairment [None]
  - Dysgeusia [None]
  - Back pain [None]
